FAERS Safety Report 5858529-5 (Version None)
Quarter: 2008Q3

REPORT INFORMATION
  Report Type: 
  Country: None (occurrence: None)
  Receive Date: 20080826
  Receipt Date: 20080814
  Transmission Date: 20090109
  Serious: Yes (Hospitalization)
  Sender: FDA-Public Use
  Company Number: DE-PFIZER INC-2008066809

PATIENT
  Sex: Male
  Weight: 83 kg

DRUGS (1)
  1. LYRICA [Suspect]
     Indication: RADICULAR PAIN
     Route: 048

REACTIONS (2)
  - INTERCOSTAL NEURALGIA [None]
  - WITHDRAWAL SYNDROME [None]
